FAERS Safety Report 19800387 (Version 1)
Quarter: 2021Q3

REPORT INFORMATION
  Report Type: Other
  Country: CA (occurrence: CA)
  Receive Date: 20210908
  Receipt Date: 20210908
  Transmission Date: 20211014
  Serious: Yes (Hospitalization, Other)
  Sender: FDA-Public Use
  Company Number: CA-CELLTRION INC.-2021CA011863

PATIENT

DRUGS (18)
  1. ACETAMINOPHEN. [Concomitant]
     Active Substance: ACETAMINOPHEN
     Indication: PREMEDICATION
     Dosage: 1000.0 MILLIGRAM
     Route: 048
  2. HYDROCHLOROTHIAZIDE. [Concomitant]
     Active Substance: HYDROCHLOROTHIAZIDE
  3. METHYLPREDNISOLONE. [Concomitant]
     Active Substance: METHYLPREDNISOLONE
     Indication: PREMEDICATION
     Dosage: 100.0 MILLIGRAM
     Route: 042
  4. PANTOPRAZOLE [Concomitant]
     Active Substance: PANTOPRAZOLE
     Route: 065
  5. METHOTREXATE. [Concomitant]
     Active Substance: METHOTREXATE
     Route: 048
  6. ROSUVASTATIN CALCIUM. [Concomitant]
     Active Substance: ROSUVASTATIN CALCIUM
     Dosage: 20.0 MILLIGRAM
     Route: 048
  7. SALBUTAMOL [Concomitant]
     Active Substance: ALBUTEROL
  8. PREDNISONE. [Concomitant]
     Active Substance: PREDNISONE
  9. HYDROXYCHLOROQUINE SULFATE. [Suspect]
     Active Substance: HYDROXYCHLOROQUINE SULFATE
     Indication: PRODUCT USED FOR UNKNOWN INDICATION
     Route: 065
  10. DIPHENHYDRAMINE HYDROCHLORIDE. [Concomitant]
     Active Substance: DIPHENHYDRAMINE HYDROCHLORIDE
     Indication: PREMEDICATION
     Dosage: 50.0 MILLIGRAM
     Route: 048
  11. NAPROXEN SODIUM. [Concomitant]
     Active Substance: NAPROXEN SODIUM
  12. RITUXIMAB. [Suspect]
     Active Substance: RITUXIMAB
     Indication: RHEUMATOID ARTHRITIS
     Dosage: 1000.0 MILLIGRAM, CYCLICAL
     Route: 042
  13. ESOMEPRAZOLE MAGNESIUM TRIHYDRATE;NAPROXEN [Concomitant]
     Active Substance: ESOMEPRAZOLE MAGNESIUM\NAPROXEN
     Dosage: UNK
  14. FOLIC ACID. [Concomitant]
     Active Substance: FOLIC ACID
  15. NIFEDIPINE. [Concomitant]
     Active Substance: NIFEDIPINE
  16. CICLESONIDE [Concomitant]
     Active Substance: CICLESONIDE
     Dosage: UNK, 2 EVERY 1 DAYS
     Route: 065
  17. FLUTICASONE PROPIONATE. [Concomitant]
     Active Substance: FLUTICASONE PROPIONATE
  18. METHYLPREDNISOLONE SODIUM SUCCINATE. [Suspect]
     Active Substance: METHYLPREDNISOLONE SODIUM SUCCINATE
     Indication: PNEUMONIA
     Dosage: UNK
     Route: 042

REACTIONS (29)
  - Arteriosclerosis coronary artery [Recovered/Resolved]
  - Diaphragm muscle weakness [Recovered/Resolved]
  - Platelet count increased [Recovered/Resolved]
  - Upper-airway cough syndrome [Recovered/Resolved]
  - Haemoglobin decreased [Recovered/Resolved]
  - Interstitial lung disease [Recovered/Resolved]
  - Haematocrit decreased [Recovered/Resolved]
  - Arthralgia [Recovered/Resolved]
  - Mycobacterium avium complex infection [Recovered/Resolved]
  - Drug ineffective [Recovered/Resolved]
  - Aortic arteriosclerosis [Recovered/Resolved]
  - Basophil count increased [Recovered/Resolved]
  - Neutrophil count increased [Recovered/Resolved]
  - Tension [Recovered/Resolved]
  - Chills [Recovered/Resolved]
  - C-reactive protein increased [Recovered/Resolved]
  - Eosinophil count increased [Recovered/Resolved]
  - Pain [Recovered/Resolved]
  - Rheumatoid factor increased [Recovered/Resolved]
  - Pneumonia [Recovered/Resolved]
  - Antinuclear antibody increased [Recovered/Resolved]
  - Red cell distribution width increased [Recovered/Resolved]
  - White blood cell count increased [Recovered/Resolved]
  - Hyperglycaemia [Recovered/Resolved]
  - Anti-cyclic citrullinated peptide antibody [Recovered/Resolved]
  - Creatinine urine increased [Recovered/Resolved]
  - Increased bronchial secretion [Recovered/Resolved]
  - Mean cell haemoglobin decreased [Recovered/Resolved]
  - Back pain [Recovered/Resolved]
